FAERS Safety Report 5765300-1 (Version None)
Quarter: 2008Q2

REPORT INFORMATION
  Report Type: 
  Country: None (occurrence: None)
  Receive Date: 20080611
  Receipt Date: 20080602
  Transmission Date: 20081010
  Serious: Yes (Other)
  Sender: FDA-Public Use
  Company Number: GB-WYE-G00822307

PATIENT
  Sex: Female

DRUGS (7)
  1. EFFEXOR [Suspect]
     Indication: MYALGIA
     Route: 048
     Dates: start: 20071113
  2. MIDODRINE [Concomitant]
     Dosage: 5MG, FREQUENCY UNKNOWN
  3. BRICANYL [Concomitant]
     Dosage: UNKNOWN
     Route: 055
  4. LANSOPRAZOLE [Concomitant]
     Dosage: UNKNOWN
  5. SERETIDE [Concomitant]
     Dosage: UNKNOWN
     Route: 055
  6. PREGABALIN [Concomitant]
  7. CO-DYDRAMOL [Concomitant]
     Dosage: UNKNOWN

REACTIONS (2)
  - DEPRESSION [None]
  - PLEURAL EFFUSION [None]
